FAERS Safety Report 22337765 (Version 1)
Quarter: 2023Q2

REPORT INFORMATION
  Report Type: Spontaneous
  Country: US (occurrence: US)
  Receive Date: 20230518
  Receipt Date: 20230518
  Transmission Date: 20230722
  Serious: No
  Sender: FDA-Public Use
  Company Number: US-COLLEGIUM PHARMACEUTICAL, INC.-2022CGM00435

PATIENT
  Age: 56 Year
  Sex: Female

DRUGS (3)
  1. XTAMPZA ER [Suspect]
     Active Substance: OXYCODONE
     Dosage: 9 MG, EVERY 12 HOURS
     Route: 048
     Dates: start: 202111, end: 202206
  2. XTAMPZA ER [Suspect]
     Active Substance: OXYCODONE
     Dosage: 9 MG, EVERY 12 HOURS
     Route: 048
     Dates: start: 2022, end: 20220705
  3. PERCOCET [Concomitant]
     Active Substance: ACETAMINOPHEN\OXYCODONE HYDROCHLORIDE
     Dosage: 1 DOSAGE FORM, 3X/DAY

REACTIONS (1)
  - Muscle spasms [Recovered/Resolved]

NARRATIVE: CASE EVENT DATE: 20220301
